FAERS Safety Report 8117161-3 (Version None)
Quarter: 2012Q1

REPORT INFORMATION
  Report Type: 
  Country: None (occurrence: None)
  Receive Date: 20120206
  Receipt Date: 20120202
  Transmission Date: 20120608
  Serious: Yes (Death)
  Sender: FDA-Public Use
  Company Number: TR-ABBOTT-12P-161-0900986-00

PATIENT
  Age: 67 Year
  Sex: Female
  Weight: 90 kg

DRUGS (2)
  1. ANTIDIABETIC [Concomitant]
     Indication: DIABETES MELLITUS
     Route: 048
     Dates: end: 20120202
  2. TARKA [Suspect]
     Indication: HYPERTENSION
     Dosage: 180/2MG
     Route: 048
     Dates: end: 20120202

REACTIONS (4)
  - HYPOTENSION [None]
  - NODAL RHYTHM [None]
  - BRADYCARDIA [None]
  - DEVICE INEFFECTIVE [None]
